FAERS Safety Report 21133419 (Version 1)
Quarter: 2022Q3

REPORT INFORMATION
  Report Type: Spontaneous
  Country: IT (occurrence: None)
  Receive Date: 20220726
  Receipt Date: 20220726
  Transmission Date: 20221027
  Serious: Yes (Other)
  Sender: FDA-Public Use
  Company Number: 2022A265042

PATIENT
  Age: 64 Year
  Sex: Male

DRUGS (12)
  1. TICAGRELOR [Interacting]
     Active Substance: TICAGRELOR
     Indication: Acute myocardial infarction
     Route: 048
  2. TICAGRELOR [Interacting]
     Active Substance: TICAGRELOR
     Indication: Angiocardiogram
     Route: 048
  3. TICAGRELOR [Interacting]
     Active Substance: TICAGRELOR
     Indication: Antiplatelet therapy
     Route: 048
  4. ASPIRIN [Interacting]
     Active Substance: ASPIRIN
     Indication: Acute myocardial infarction
     Route: 065
  5. ASPIRIN [Interacting]
     Active Substance: ASPIRIN
     Indication: Angiocardiogram
     Route: 065
  6. ATORVASTATIN [Interacting]
     Active Substance: ATORVASTATIN
     Indication: Acute myocardial infarction
     Route: 065
  7. ATORVASTATIN [Interacting]
     Active Substance: ATORVASTATIN
     Indication: Angiocardiogram
     Route: 065
  8. ATORVASTATIN [Interacting]
     Active Substance: ATORVASTATIN
     Indication: Acute myocardial infarction
     Route: 065
  9. ATORVASTATIN [Interacting]
     Active Substance: ATORVASTATIN
     Indication: Angiocardiogram
     Route: 065
  10. RILPIVIRINE [Concomitant]
     Active Substance: RILPIVIRINE
  11. DARUNAVIR [Concomitant]
     Active Substance: DARUNAVIR
  12. COBICISTAT [Concomitant]
     Active Substance: COBICISTAT

REACTIONS (1)
  - Drug interaction [Unknown]
